FAERS Safety Report 4755825-X (Version None)
Quarter: 2005Q3

REPORT INFORMATION
  Report Type: 
  Country: None (occurrence: None)
  Receive Date: 20050830
  Receipt Date: 20050406
  Transmission Date: 20060218
  Serious: No
  Sender: FDA-Public Use
  Company Number: US-BRISTOL-MYERS SQUIBB COMPANY-12923306

PATIENT
  Age: 71 Year
  Sex: Male

DRUGS (3)
  1. ERBITUX [Suspect]
     Indication: COLON CANCER
     Route: 042
     Dates: start: 20050406, end: 20050406
  2. BENADRYL [Concomitant]
     Indication: PREMEDICATION
     Dates: start: 20050406, end: 20050406
  3. TYLENOL [Concomitant]
     Indication: PREMEDICATION
     Dates: start: 20050406, end: 20050406

REACTIONS (1)
  - EXTRAVASATION [None]
